FAERS Safety Report 4748347-3 (Version None)
Quarter: 2005Q3

REPORT INFORMATION
  Report Type: 
  Country: None (occurrence: None)
  Receive Date: 20050818
  Receipt Date: 20050321
  Transmission Date: 20060218
  Serious: Yes (Hospitalization, Disabling)
  Sender: FDA-Public Use
  Company Number: US-MERCK-0503USA03956

PATIENT
  Age: 48 Year
  Sex: Male
  Weight: 82 kg

DRUGS (5)
  1. LEVOXYL [Concomitant]
     Indication: THYROID DISORDER
     Route: 065
     Dates: start: 19970808
  2. VIOXX [Suspect]
     Indication: ARTHROPATHY
     Route: 048
     Dates: start: 20001031
  3. VIOXX [Suspect]
     Route: 048
     Dates: start: 20000916, end: 20001001
  4. VIOXX [Suspect]
     Indication: OSTEOARTHRITIS
     Route: 048
     Dates: start: 20001031
  5. VIOXX [Suspect]
     Route: 048
     Dates: start: 20000916, end: 20001001

REACTIONS (14)
  - ABNORMAL CLOTTING FACTOR [None]
  - CARDIAC MURMUR [None]
  - CEREBROVASCULAR ACCIDENT [None]
  - DEPRESSION [None]
  - DISTURBANCE IN ATTENTION [None]
  - FALL [None]
  - HYPERLIPIDAEMIA [None]
  - HYPERTENSION [None]
  - JOINT DISLOCATION [None]
  - LACUNAR INFARCTION [None]
  - MITRAL VALVE INCOMPETENCE [None]
  - MITRAL VALVE PROLAPSE [None]
  - TRANSIENT ISCHAEMIC ATTACK [None]
  - UPPER LIMB FRACTURE [None]
